FAERS Safety Report 16749767 (Version 4)
Quarter: 2019Q3

REPORT INFORMATION
  Report Type: Report from Study
  Country: GB (occurrence: GB)
  Receive Date: 20190828
  Receipt Date: 20190913
  Transmission Date: 20191005
  Serious: Yes (Congenital Anomaly)
  Sender: FDA-Public Use
  Company Number: PHHY2019GB198407

PATIENT
  Sex: Male
  Weight: 3 kg

DRUGS (6)
  1. LABETALOL [Suspect]
     Active Substance: LABETALOL\LABETALOL HYDROCHLORIDE
     Indication: FOETAL EXPOSURE DURING PREGNANCY
     Route: 064
  2. NEVIRAPINE. [Suspect]
     Active Substance: NEVIRAPINE
     Indication: FOETAL EXPOSURE DURING PREGNANCY
     Dosage: MATERNAL DOSE: 400 MG, QD
     Route: 064
  3. NIFEDIPINE. [Suspect]
     Active Substance: NIFEDIPINE
     Indication: FOETAL EXPOSURE DURING PREGNANCY
     Route: 064
  4. ASPIRIN. [Suspect]
     Active Substance: ASPIRIN
     Indication: FOETAL EXPOSURE DURING PREGNANCY
     Dosage: UNK
     Route: 064
  5. ABACAVIR + LAMIVUDIN [Suspect]
     Active Substance: ABACAVIR\LAMIVUDINE
     Indication: FOETAL EXPOSURE DURING PREGNANCY
     Dosage: MATERNAL DOSE: 1 DF, QD
     Route: 064
  6. SEBIVO [Suspect]
     Active Substance: TELBIVUDINE
     Indication: FOETAL EXPOSURE DURING PREGNANCY
     Dosage: MATERNAL DOSE: 200-499 UL
     Route: 064

REACTIONS (2)
  - Polydactyly [Unknown]
  - Foetal exposure during pregnancy [Unknown]
